FAERS Safety Report 15795335 (Version 1)
Quarter: 2019Q1

REPORT INFORMATION
  Report Type: Spontaneous
  Country: US (occurrence: US)
  Receive Date: 20190107
  Receipt Date: 20190107
  Transmission Date: 20190417
  Serious: No
  Sender: FDA-Public Use
  Company Number: US-GALDERMA-US18000433

PATIENT
  Age: 77 Year
  Sex: Female

DRUGS (1)
  1. METRONIDAZOLE TOPICAL GEL, 0.75% [Suspect]
     Active Substance: METRONIDAZOLE
     Indication: ROSACEA
     Dosage: 0.75%
     Route: 061
     Dates: start: 20180103, end: 20180103

REACTIONS (5)
  - Rosacea [Not Recovered/Not Resolved]
  - Pruritus [Recovered/Resolved]
  - Dermatitis allergic [Unknown]
  - Dermatitis [Not Recovered/Not Resolved]
  - Pain of skin [Recovered/Resolved]

NARRATIVE: CASE EVENT DATE: 20180103
